FAERS Safety Report 7940258-5 (Version None)
Quarter: 2011Q4

REPORT INFORMATION
  Report Type: 
  Country: None (occurrence: None)
  Receive Date: 20111126
  Receipt Date: 20110919
  Transmission Date: 20120403
  Serious: No
  Sender: FDA-Public Use
  Company Number: US-BAYER-2011-091246

PATIENT
  Sex: Female
  Weight: 59 kg

DRUGS (2)
  1. CRESTOR [Concomitant]
  2. ALEVE (CAPLET) [Suspect]
     Indication: ARTHRITIS
     Dosage: 2 DF, ONCE
     Route: 048
     Dates: start: 20110919, end: 20110919

REACTIONS (3)
  - FATIGUE [None]
  - APATHY [None]
  - FEELING ABNORMAL [None]
